FAERS Safety Report 16464209 (Version 1)
Quarter: 2019Q3

REPORT INFORMATION
  Report Type: Spontaneous
  Country: US (occurrence: US)
  Receive Date: 20190620
  Receipt Date: 20190620
  Transmission Date: 20191004
  Serious: Yes (Other)
  Sender: FDA-Public Use
  Company Number: None

PATIENT
  Age: 45 Year
  Sex: Female
  Weight: 83.7 kg

DRUGS (16)
  1. CELEXA [Concomitant]
     Active Substance: CITALOPRAM HYDROBROMIDE
  2. OMEPRAZOLE. [Concomitant]
     Active Substance: OMEPRAZOLE
  3. VENTOLIN HFA [Concomitant]
     Active Substance: ALBUTEROL SULFATE
  4. AMLODIPINE [Concomitant]
     Active Substance: AMLODIPINE BESYLATE
  5. BLACK COHOSH EXTRACT [Concomitant]
  6. BURPIRONE [Concomitant]
  7. CYANOCOBALAMIN. [Concomitant]
     Active Substance: CYANOCOBALAMIN
  8. FOLIC ACID. [Concomitant]
     Active Substance: FOLIC ACID
  9. ERLOTINIB [Suspect]
     Active Substance: ERLOTINIB
     Indication: LUNG CARCINOMA CELL TYPE UNSPECIFIED STAGE 0
     Route: 048
     Dates: start: 20190514
  10. CETIRIZINE [Concomitant]
     Active Substance: CETIRIZINE HYDROCHLORIDE
  11. FLONASE [Concomitant]
     Active Substance: FLUTICASONE PROPIONATE
  12. MECLIZINE [Concomitant]
     Active Substance: MECLIZINE HYDROCHLORIDE
  13. TURMERIC CURCUMIN [Concomitant]
     Active Substance: HERBALS\TURMERIC
  14. CALCIUM+D [Concomitant]
     Active Substance: CALCIUM\VITAMIN D
  15. ANASTROZOLE. [Concomitant]
     Active Substance: ANASTROZOLE
  16. AZELASTINE HCL [Concomitant]
     Active Substance: AZELASTINE HYDROCHLORIDE

REACTIONS (1)
  - Gastrooesophageal reflux disease [None]
